FAERS Safety Report 4346107-9 (Version None)
Quarter: 2004Q1

REPORT INFORMATION
  Report Type: 
  Country: None (occurrence: None)
  Receive Date: 20040325
  Receipt Date: 20040128
  Transmission Date: 20041129
  Serious: No
  Sender: FDA-Public Use
  Company Number: USA031254113

PATIENT
  Age: 69 Year
  Sex: Female
  Weight: 73 kg

DRUGS (6)
  1. FORTEO [Suspect]
     Indication: OSTEOPOROSIS
     Dates: start: 20031203, end: 20031205
  2. NORVASC [Concomitant]
  3. FLOVENT [Concomitant]
  4. ALLEGRA [Concomitant]
  5. PROTONIX [Concomitant]
  6. LIPITOR [Concomitant]

REACTIONS (5)
  - DYSGEUSIA [None]
  - FEELING ABNORMAL [None]
  - FEELING DRUNK [None]
  - FEELING JITTERY [None]
  - HYPOAESTHESIA [None]
